FAERS Safety Report 17032811 (Version 1)
Quarter: 2019Q4

REPORT INFORMATION
  Report Type: Spontaneous
  Country: US (occurrence: US)
  Receive Date: 20191014
  Receipt Date: 20191014
  Transmission Date: 20200122
  Serious: No
  Sender: FDA-Public Use
  Company Number: None

PATIENT
  Age: 40 Year
  Sex: Male

DRUGS (1)
  1. STELARA [Suspect]
     Active Substance: USTEKINUMAB
     Route: 048
     Dates: start: 201702

REACTIONS (2)
  - Nausea [None]
  - Wrong technique in product usage process [None]

NARRATIVE: CASE EVENT DATE: 20191014
